FAERS Safety Report 17227229 (Version 1)
Quarter: 2020Q1

REPORT INFORMATION
  Report Type: Spontaneous
  Country: CN (occurrence: CN)
  Receive Date: 20200103
  Receipt Date: 20200103
  Transmission Date: 20200409
  Serious: Yes (Death, Other)
  Sender: FDA-Public Use
  Company Number: CN-ROCHE-2509044

PATIENT
  Age: 61 Year
  Sex: Female
  Weight: 60 kg

DRUGS (4)
  1. CYCLOPHOSPHAMIDE. [Suspect]
     Active Substance: CYCLOPHOSPHAMIDE
     Indication: INVASIVE DUCTAL BREAST CARCINOMA
     Dosage: DF=TABLET
     Route: 048
     Dates: start: 20190927, end: 20191104
  2. METHOTREXATE. [Suspect]
     Active Substance: METHOTREXATE
     Indication: INVASIVE DUCTAL BREAST CARCINOMA
     Route: 048
     Dates: start: 20190927, end: 20191104
  3. XELODA [Suspect]
     Active Substance: CAPECITABINE
     Indication: INVASIVE DUCTAL BREAST CARCINOMA
     Route: 048
     Dates: start: 20190508, end: 20190813
  4. XELODA [Suspect]
     Active Substance: CAPECITABINE
     Route: 048
     Dates: start: 20190927, end: 20191104

REACTIONS (7)
  - Hepatic function abnormal [Fatal]
  - Renal failure [Fatal]
  - Sepsis [Unknown]
  - Renal failure [Unknown]
  - Pneumonia [Unknown]
  - Somnolence [Unknown]
  - Hepatic failure [Fatal]

NARRATIVE: CASE EVENT DATE: 20191101
